FAERS Safety Report 16255817 (Version 1)
Quarter: 2019Q2

REPORT INFORMATION
  Report Type: Spontaneous
  Country: US (occurrence: US)
  Receive Date: 20190429
  Receipt Date: 20190429
  Transmission Date: 20190711
  Serious: Yes (Death)
  Sender: FDA-Public Use
  Company Number: None

PATIENT
  Age: 68 Year
  Sex: Male

DRUGS (5)
  1. CAPECITABINE. [Suspect]
     Active Substance: CAPECITABINE
     Indication: ANAL CANCER
     Dosage: ?          OTHER FREQUENCY:BID MON-FRI;?
     Route: 048
     Dates: start: 20181228, end: 20190127
  2. METFORMIN, METOPROLOL [Concomitant]
  3. LANTUS, LIPITOR [Concomitant]
  4. ASPIRIN LOW, HUMALOG [Concomitant]
  5. MULTI-VITAMIN, TENOFOVIR [Concomitant]

REACTIONS (1)
  - Death [None]

NARRATIVE: CASE EVENT DATE: 20190127
